FAERS Safety Report 19097308 (Version 1)
Quarter: 2021Q2

REPORT INFORMATION
  Report Type: Spontaneous
  Country: US (occurrence: US)
  Receive Date: 20210406
  Receipt Date: 20210406
  Transmission Date: 20210717
  Serious: No
  Sender: FDA-Public Use
  Company Number: None

PATIENT
  Age: 46 Year
  Sex: Female

DRUGS (1)
  1. BENLYSTA [Suspect]
     Active Substance: BELIMUMAB
     Dosage: ?          OTHER DOSE:SYRINGE;OTHER FREQUENCY:OTHER;?
     Route: 058
     Dates: start: 201806

REACTIONS (5)
  - Lethargy [None]
  - Alopecia [None]
  - Diarrhoea [None]
  - Hypotension [None]
  - Fatigue [None]

NARRATIVE: CASE EVENT DATE: 20210406
